FAERS Safety Report 26112350 (Version 1)
Quarter: 2025Q4

REPORT INFORMATION
  Report Type: Spontaneous
  Country: US (occurrence: None)
  Receive Date: 20251202
  Receipt Date: 20251202
  Transmission Date: 20260117
  Serious: Yes (Death)
  Sender: FDA-CTU
  Company Number: None

PATIENT
  Age: 65 Year
  Sex: Male
  Weight: 103.5 kg

DRUGS (1)
  1. TECARTUS [Suspect]
     Active Substance: BREXUCABTAGENE AUTOLEUCEL
     Dosage: INTRAVENOUS
     Route: 042
     Dates: start: 20251110

REACTIONS (6)
  - Mental status changes [None]
  - Pyrexia [None]
  - Hypotension [None]
  - Immune effector cell-associated neurotoxicity syndrome [None]
  - Bacteraemia [None]
  - Multiple organ dysfunction syndrome [None]

NARRATIVE: CASE EVENT DATE: 20251128
